FAERS Safety Report 13429229 (Version 2)
Quarter: 2017Q2

REPORT INFORMATION
  Report Type: Report from Study
  Country: CA (occurrence: CA)
  Receive Date: 20170411
  Receipt Date: 20170503
  Transmission Date: 20170830
  Serious: Yes (Death)
  Sender: FDA-Public Use
  Company Number: CA-HLSUS-2017-CA-000368

PATIENT
  Age: 53 Year
  Sex: Female

DRUGS (1)
  1. CLOZARIL [Suspect]
     Active Substance: CLOZAPINE
     Route: 048
     Dates: start: 20071126, end: 20170405

REACTIONS (3)
  - Renal failure [Unknown]
  - Oesophageal rupture [Fatal]
  - Pyelonephritis [Unknown]

NARRATIVE: CASE EVENT DATE: 20170401
